FAERS Safety Report 6654318-2 (Version None)
Quarter: 2010Q1

REPORT INFORMATION
  Report Type: 
  Country: None (occurrence: None)
  Receive Date: 20100326
  Receipt Date: 20100315
  Transmission Date: 20100710
  Serious: Yes (Other)
  Sender: FDA-Public Use
  Company Number: JP-JNJCH-2010007127

PATIENT
  Age: 47 Year
  Sex: Male

DRUGS (3)
  1. ZYRTEC [Suspect]
     Indication: RHINITIS ALLERGIC
     Dosage: TEXT:10 MG
     Route: 048
     Dates: start: 20000101, end: 20100310
  2. TRICOR [Concomitant]
     Indication: DRUG USE FOR UNKNOWN INDICATION
     Dosage: TEXT:67 MG
     Route: 048
     Dates: start: 20060101, end: 20100310
  3. POPON S [Concomitant]
     Indication: DRUG USE FOR UNKNOWN INDICATION
     Dosage: TEXT:2 TABLETS PER DAY
     Route: 048
     Dates: start: 20060101, end: 20100310

REACTIONS (5)
  - ALANINE AMINOTRANSFERASE INCREASED [None]
  - ASPARTATE AMINOTRANSFERASE INCREASED [None]
  - BLOOD ALKALINE PHOSPHATASE INCREASED [None]
  - POLLAKIURIA [None]
  - RENAL IMPAIRMENT [None]
